FAERS Safety Report 5975094-2 (Version None)
Quarter: 2008Q4

REPORT INFORMATION
  Report Type: 
  Country: None (occurrence: None)
  Receive Date: 20081128
  Receipt Date: 20081112
  Transmission Date: 20090506
  Serious: Yes (Hospitalization)
  Sender: FDA-Public Use
  Company Number: KV200800239

PATIENT
  Age: 78 Year
  Sex: Female

DRUGS (6)
  1. PROPAFENONE HCL [Suspect]
     Indication: ARRHYTHMIA
     Dosage: 150 MG, TID, ORAL
     Route: 048
     Dates: start: 20070901, end: 20081101
  2. SYNTHROID [Concomitant]
  3. POTASSIUM (POTASSIUM) [Concomitant]
  4. LEXAPRO [Concomitant]
  5. LASIX [Concomitant]
  6. PRAVACHOL [Concomitant]

REACTIONS (3)
  - ANXIETY [None]
  - INTESTINAL OBSTRUCTION [None]
  - NERVOUSNESS [None]
